FAERS Safety Report 20472313 (Version 1)
Quarter: 2022Q1

REPORT INFORMATION
  Report Type: Spontaneous
  Country: CN (occurrence: CN)
  Receive Date: 20220215
  Receipt Date: 20220215
  Transmission Date: 20220423
  Serious: Yes (Other)
  Sender: FDA-Public Use
  Company Number: CN-STRIDES ARCOLAB LIMITED-2022SP001239

PATIENT
  Age: 76 Year
  Sex: Male

DRUGS (5)
  1. DEXAMETHASONE [Suspect]
     Active Substance: DEXAMETHASONE
     Indication: Angioimmunoblastic T-cell lymphoma
     Dosage: 7.5 MILLIGRAM/SQ. METER, QD ( FROM DAY 1 TO DAY 5; CAOLD CHEMOTHERAPY, CYCLICAL THERAPY)
     Route: 065
     Dates: start: 201607
  2. CYCLOPHOSPHAMIDE [Suspect]
     Active Substance: CYCLOPHOSPHAMIDE
     Indication: Angioimmunoblastic T-cell lymphoma
     Dosage: 400 MILLIGRAM/SQ. METER, QD (ON DAY 1; CAOLD CHEMOTHERAPY, CYCLICAL THERAPY)
     Route: 065
     Dates: start: 201607
  3. CYTARABINE [Suspect]
     Active Substance: CYTARABINE
     Indication: Angioimmunoblastic T-cell lymphoma
     Dosage: 30 MILLIGRAM/SQ. METER, QD ( FROM DAY 1 TO DAY 4; CAOLD CHEMOTHERAPY, CYCLICAL THERAPY)
     Route: 065
     Dates: start: 201607
  4. VINDESINE [Suspect]
     Active Substance: VINDESINE
     Indication: Angioimmunoblastic T-cell lymphoma
     Dosage: 2 MILLIGRAM/SQ. METER, QD (ON DAY 1; CAOLD CHEMOTHERAPY, CYCLICAL THERAPY)
     Route: 065
     Dates: start: 201607
  5. PEGASPARGASE [Suspect]
     Active Substance: PEGASPARGASE
     Indication: Angioimmunoblastic T-cell lymphoma
     Dosage: UNK UNK, QD ((DOSE: 2500 IU/M2, ON DAY 2; CAOLD CHEMOTHERAPY, CYCLICAL THERAPY)
     Route: 065
     Dates: start: 201607

REACTIONS (2)
  - Neutropenia [Unknown]
  - Bacterial infection [Unknown]

NARRATIVE: CASE EVENT DATE: 20160101
